FAERS Safety Report 17623805 (Version 1)
Quarter: 2020Q2

REPORT INFORMATION
  Report Type: Spontaneous
  Country: US (occurrence: US)
  Receive Date: 20200403
  Receipt Date: 20200403
  Transmission Date: 20200713
  Serious: Yes (Hospitalization)
  Sender: FDA-Public Use
  Company Number: US-MAYNE PHARMA-2020MYN000024

PATIENT

DRUGS (3)
  1. TOLSURA [Suspect]
     Active Substance: ITRACONAZOLE
     Indication: HISTOPLASMOSIS DISSEMINATED
     Dosage: 130 MG, DAILY
     Route: 065
  2. BIKTARVY [Concomitant]
     Active Substance: BICTEGRAVIR SODIUM\EMTRICITABINE\TENOFOVIR ALAFENAMIDE FUMARATE
     Indication: HISTOPLASMOSIS DISSEMINATED
     Route: 065
  3. TOLSURA [Suspect]
     Active Substance: ITRACONAZOLE
     Dosage: 130 MG, TWICE A DAY
     Route: 065

REACTIONS (1)
  - Treatment failure [Unknown]
